FAERS Safety Report 5913197-9 (Version None)
Quarter: 2008Q4

REPORT INFORMATION
  Report Type: 
  Country: None (occurrence: None)
  Receive Date: 20081006
  Receipt Date: 20080924
  Transmission Date: 20090506
  Serious: Yes (Life-Threatening, Hospitalization)
  Sender: FDA-Public Use
  Company Number: 20074055

PATIENT
  Sex: Male

DRUGS (1)
  1. LIORESAL [Suspect]
     Indication: MUSCLE SPASTICITY
     Dosage: DAILY, INTRATHECAL
     Route: 037

REACTIONS (11)
  - CARDIAC DISORDER [None]
  - CARDIAC FIBRILLATION [None]
  - CATHETER RELATED COMPLICATION [None]
  - DEVICE BREAKAGE [None]
  - HALLUCINATION [None]
  - HYPERHIDROSIS [None]
  - HYPERTONIA [None]
  - MUSCLE SPASTICITY [None]
  - PYREXIA [None]
  - TACHYCARDIA [None]
  - WITHDRAWAL SYNDROME [None]
